FAERS Safety Report 5747634-X (Version None)
Quarter: 2008Q2

REPORT INFORMATION
  Report Type: 
  Country: None (occurrence: None)
  Receive Date: 20080523
  Receipt Date: 20080519
  Transmission Date: 20081010
  Serious: Yes (Hospitalization)
  Sender: FDA-Public Use
  Company Number: JP-AVENTIS-200814634GDDC

PATIENT
  Age: 46 Year
  Sex: Female

DRUGS (4)
  1. RIFAMPICIN [Suspect]
     Indication: TUBERCULOSIS
  2. ISCOTIN                            /00030201/ [Suspect]
     Indication: TUBERCULOSIS
  3. PYRAMIDE [Suspect]
     Indication: TUBERCULOSIS
  4. ETHAMBUTOL HYDROCHLORIDE [Suspect]
     Indication: TUBERCULOSIS

REACTIONS (1)
  - TUBERCULOMA OF CENTRAL NERVOUS SYSTEM [None]
